FAERS Safety Report 5132404-6 (Version None)
Quarter: 2006Q4

REPORT INFORMATION
  Report Type: 
  Country: None (occurrence: None)
  Receive Date: 20061017
  Receipt Date: 20061003
  Transmission Date: 20070319
  Serious: Yes (Hospitalization)
  Sender: FDA-Public Use
  Company Number: IT200610001291

PATIENT
  Age: 74 Year
  Sex: Female

DRUGS (4)
  1. FORSTEO (TERIPARATIE) PEN, DISPOSABLE [Suspect]
     Indication: OSTEOPOROSIS
     Dosage: 20 UG, SUBCUTANEOUS
     Route: 058
  2. DIGOXIN [Concomitant]
  3. NITROGLICERINA (GLYCERYL TRINITRATE) [Concomitant]
  4. OMEPRAZOLE [Concomitant]

REACTIONS (1)
  - RECTAL HAEMORRHAGE [None]
